FAERS Safety Report 5713922-6 (Version None)
Quarter: 2008Q2

REPORT INFORMATION
  Report Type: 
  Country: None (occurrence: None)
  Receive Date: 20080422
  Receipt Date: 20080422
  Transmission Date: 20081010
  Serious: Yes (Hospitalization)
  Sender: FDA-Public Use
  Company Number: None

PATIENT
  Sex: Male
  Weight: 88 kg

DRUGS (2)
  1. TEMOZOLOMIDE [Suspect]
     Indication: ACUTE MYELOID LEUKAEMIA
     Dosage: 100MG/M2 (CONSOLID.) QD PO
     Route: 048
     Dates: start: 20080322, end: 20080404
  2. TEMOZOLOMIDE [Suspect]
     Indication: ACUTE MYELOID LEUKAEMIA
     Dosage: 200MG/M2 (CONSOLID.) QD PO
     Route: 048
     Dates: start: 20080405, end: 20080409

REACTIONS (4)
  - FEBRILE NEUTROPENIA [None]
  - GASTROINTESTINAL HAEMORRHAGE [None]
  - PANCYTOPENIA [None]
  - PYREXIA [None]
